FAERS Safety Report 23144305 (Version 1)
Quarter: 2023Q4

REPORT INFORMATION
  Report Type: Other
  Country: US (occurrence: None)
  Receive Date: 20231103
  Receipt Date: 20231103
  Transmission Date: 20240110
  Serious: Yes (Other)
  Sender: FDA-Public Use
  Company Number: US-ROCHE-3444332

PATIENT

DRUGS (4)
  1. RITUXIMAB [Suspect]
     Active Substance: RITUXIMAB
     Indication: Follicular lymphoma
     Route: 041
  2. UTOMILUMAB [Suspect]
     Active Substance: UTOMILUMAB
     Indication: Follicular lymphoma
     Route: 041
  3. AVELUMAB [Suspect]
     Active Substance: AVELUMAB
     Indication: Follicular lymphoma
     Route: 041
  4. AVELUMAB [Suspect]
     Active Substance: AVELUMAB
     Route: 041

REACTIONS (48)
  - Infusion related reaction [Unknown]
  - Hypertension [Unknown]
  - Hypertriglyceridaemia [Unknown]
  - Hypophosphataemia [Unknown]
  - Lymphocyte count decreased [Unknown]
  - Infection [Unknown]
  - Lymphopenia [Unknown]
  - Neutropenia [Unknown]
  - Embolism [Unknown]
  - Fatigue [Unknown]
  - Abdominal pain [Unknown]
  - Anaemia [Unknown]
  - Decreased appetite [Unknown]
  - Arthralgia [Unknown]
  - Pyrexia [Unknown]
  - Gastrooesophageal reflux disease [Unknown]
  - Headache [Unknown]
  - Hypothyroidism [Unknown]
  - Lymph node pain [Unknown]
  - Myalgia [Unknown]
  - Nausea [Unknown]
  - Neutrophil count decreased [Unknown]
  - Pain [Unknown]
  - Platelet count decreased [Unknown]
  - Rash maculo-papular [Unknown]
  - White blood cell count decreased [Unknown]
  - Back pain [Unknown]
  - Chills [Unknown]
  - Conjunctivitis [Unknown]
  - Constipation [Unknown]
  - Dehydration [Unknown]
  - Diarrhoea [Unknown]
  - Dry skin [Unknown]
  - Dysgeusia [Unknown]
  - Oesophageal stenosis [Unknown]
  - Flushing [Unknown]
  - Hot flush [Unknown]
  - Hyperuricaemia [Unknown]
  - Insomnia [Unknown]
  - Nasal congestion [Unknown]
  - Neck pain [Unknown]
  - Periorbital oedema [Unknown]
  - Photophobia [Unknown]
  - Pruritus [Unknown]
  - Oropharyngeal pain [Unknown]
  - Upper respiratory tract infection [Unknown]
  - Urticaria [Unknown]
  - Lacrimation increased [Unknown]
